FAERS Safety Report 4809027-9 (Version None)
Quarter: 2005Q4

REPORT INFORMATION
  Report Type: 
  Country: None (occurrence: None)
  Receive Date: 20051021
  Receipt Date: 20050418
  Transmission Date: 20060501
  Serious: Yes (Other)
  Sender: FDA-Public Use
  Company Number: GBS050417180

PATIENT
  Age: 22 Year
  Sex: Female

DRUGS (2)
  1. ZYPREXA [Suspect]
     Indication: PSYCHOTIC DISORDER
     Dosage: 20 MG
     Route: 048
     Dates: start: 20040203
  2. FLUOXETINE [Concomitant]

REACTIONS (1)
  - MENSTRUATION IRREGULAR [None]
